FAERS Safety Report 8986374 (Version 2)
Quarter: 2012Q4

REPORT INFORMATION
  Report Type: Spontaneous
  Country: US (occurrence: None)
  Receive Date: 20121217
  Receipt Date: 20121217
  Transmission Date: 20130627
  Serious: Yes (Hospitalization)
  Sender: FDA-Public Use
  Company Number: COM-000852

PATIENT
  Age: 1 Year
  Sex: Male
  Weight: 9.53 kg

DRUGS (1)
  1. DIPHENHYDRAMINE HCL [Suspect]
     Dates: start: 20121130, end: 20121130

REACTIONS (6)
  - Accidental exposure to product by child [None]
  - Gait disturbance [None]
  - Convulsion [None]
  - Hallucination [None]
  - Failure of child resistant mechanism for pharmaceutical product [None]
  - Product container seal issue [None]
